FAERS Safety Report 8561423 (Version 2)
Quarter: 2013Q4

REPORT INFORMATION
  Report Type: Report from Study
  Country: US (occurrence: US)
  Receive Date: 20120514
  Receipt Date: 20131014
  Transmission Date: 20140711
  Serious: No
  Sender: FDA-Public Use
  Company Number: US-ELI_LILLY_AND_COMPANY-US201103003295

PATIENT
  Sex: Female

DRUGS (1)
  1. TERIPARATIDE [Suspect]
     Dosage: 20 UG, QD
     Route: 058
     Dates: start: 20100412, end: 201205

REACTIONS (6)
  - Contusion [Unknown]
  - Fall [Unknown]
  - Fall [Unknown]
  - Blood pressure increased [Unknown]
  - Blood sodium decreased [Unknown]
  - Dizziness [Unknown]
